FAERS Safety Report 17665347 (Version 3)
Quarter: 2020Q2

REPORT INFORMATION
  Report Type: Spontaneous
  Country: GB (occurrence: GB)
  Receive Date: 20200414
  Receipt Date: 20200623
  Transmission Date: 20200713
  Serious: Yes (Death, Hospitalization)
  Sender: FDA-Public Use
  Company Number: NVSC2020GB099161

PATIENT
  Age: 57 Year
  Sex: Male

DRUGS (6)
  1. RISPERIDONE. [Suspect]
     Active Substance: RISPERIDONE
     Dosage: 1500 UG
     Route: 065
     Dates: start: 2019
  2. RAMIPRIL. [Concomitant]
     Active Substance: RAMIPRIL
     Indication: HYPERTENSION
     Dosage: UNK
     Route: 065
  3. AMLODIPINE [Concomitant]
     Active Substance: AMLODIPINE BESYLATE
     Indication: HYPERTENSION
     Route: 065
  4. RISPERIDONE. [Suspect]
     Active Substance: RISPERIDONE
     Indication: SEIZURE
     Dosage: 12 MG, QD
     Route: 065
     Dates: start: 2004, end: 2019
  5. RISPERDAL [Suspect]
     Active Substance: RISPERIDONE
     Indication: SEIZURE
     Dosage: 12 MG, QD
     Route: 065
     Dates: start: 2004, end: 2019
  6. ZARONTIN [Concomitant]
     Active Substance: ETHOSUXIMIDE
     Indication: PRODUCT USED FOR UNKNOWN INDICATION
     Dosage: 780 MG, QD
     Route: 065

REACTIONS (15)
  - Insomnia [Unknown]
  - Colon cancer [Fatal]
  - Dyspnoea [Unknown]
  - Pollakiuria [Unknown]
  - Feeling hot [Unknown]
  - Lung neoplasm malignant [Unknown]
  - Dyskinesia [Unknown]
  - Seizure [Unknown]
  - Rash pruritic [Not Recovered/Not Resolved]
  - Hyperhidrosis [Unknown]
  - Vomiting [Unknown]
  - Abnormal weight gain [Unknown]
  - Gynaecomastia [Unknown]
  - Gastric cancer [Fatal]
  - Somnolence [Unknown]

NARRATIVE: CASE EVENT DATE: 2017
